FAERS Safety Report 9431517 (Version 1)
Quarter: 2013Q3

REPORT INFORMATION
  Report Type: Spontaneous
  Country: JP (occurrence: JP)
  Receive Date: 20130730
  Receipt Date: 20130730
  Transmission Date: 20140515
  Serious: Yes (Other)
  Sender: FDA-Public Use
  Company Number: JP-MYLANLABS-2013S1016345

PATIENT
  Age: 7 Decade
  Sex: Female

DRUGS (8)
  1. OXALIPLATIN [Suspect]
     Indication: COLON CANCER METASTATIC
     Dosage: 100MG INFUSION D1
     Route: 065
     Dates: end: 200904
  2. FOLINIC ACID [Suspect]
     Indication: COLON CANCER METASTATIC
     Dosage: 125MG INFUSION D1+2
     Route: 065
     Dates: end: 200904
  3. FOLINIC ACID [Suspect]
     Indication: COLON CANCER METASTATIC
     Dosage: 250MG INFUSION
     Route: 065
     Dates: end: 200906
  4. FLUOROURACIL [Suspect]
     Indication: COLON CANCER METASTATIC
     Dosage: 500MG BOLUS D1+2
     Route: 065
     Dates: end: 200904
  5. FLUOROURACIL [Suspect]
     Indication: COLON CANCER METASTATIC
     Dosage: 750MG INFUSION D1+2
     Route: 065
     Dates: end: 200904
  6. FLUOROURACIL [Suspect]
     Indication: COLON CANCER METASTATIC
     Dosage: 500MG BOLUS
     Route: 065
     Dates: end: 200906
  7. FLUOROURACIL [Suspect]
     Indication: COLON CANCER METASTATIC
     Dosage: 3700MG INFUSION
     Route: 065
     Dates: end: 200906
  8. IRINOTECAN [Suspect]
     Indication: COLON CANCER METASTATIC
     Dosage: 160MG INFUSION
     Route: 065
     Dates: end: 200906

REACTIONS (5)
  - Neuropathy peripheral [Unknown]
  - Decreased appetite [Unknown]
  - Stomatitis [Unknown]
  - Alopecia [Unknown]
  - Nausea [Unknown]
